FAERS Safety Report 5670332-8 (Version None)
Quarter: 2008Q2

REPORT INFORMATION
  Report Type: 
  Country: None (occurrence: None)
  Receive Date: 20080229
  Receipt Date: 20070531
  Transmission Date: 20081010
  Serious: Yes (Other)
  Sender: FDA-Public Use
  Company Number: 239413

PATIENT
  Age: 13 Year
  Sex: Male
  Weight: 33.1 kg

DRUGS (5)
  1. NUTROPIN AQ [Suspect]
     Indication: RENAL FAILURE CHRONIC
     Dosage: 1.5 MG, QD, SUBCUTANEOUS
     Route: 058
     Dates: start: 20070104, end: 20070303
  2. NOVOLOG (INSULIN HUMAN) [Concomitant]
  3. LANTUS [Concomitant]
  4. PREDNISONE TAB [Concomitant]
  5. CELLCEPT [Concomitant]

REACTIONS (1)
  - BLOOD GLUCOSE INCREASED [None]
